FAERS Safety Report 11288100 (Version 1)
Quarter: 2015Q3

REPORT INFORMATION
  Report Type: Spontaneous
  Country: US (occurrence: US)
  Receive Date: 20150721
  Receipt Date: 20150721
  Transmission Date: 20151125
  Serious: No
  Sender: FDA-Public Use
  Company Number: US-UNITED THERAPEUTICS-UNT-2015-002442

PATIENT
  Age: 38 Year
  Sex: Female
  Weight: 99.77 kg

DRUGS (3)
  1. ASPIRIN                            /00002701/ [Concomitant]
     Active Substance: ASPIRIN
     Indication: PRODUCT USED FOR UNKNOWN INDICATION
  2. REMODULIN [Suspect]
     Active Substance: TREPROSTINIL
     Indication: PULMONARY ARTERIAL HYPERTENSION
     Dosage: 0.077 ?G/KG/MIN, CONTINUING
     Route: 058
     Dates: start: 20131118
  3. ADCIRCA [Concomitant]
     Active Substance: TADALAFIL
     Indication: PRODUCT USED FOR UNKNOWN INDICATION

REACTIONS (6)
  - Infusion site oedema [Unknown]
  - Infusion site warmth [Not Recovered/Not Resolved]
  - Infusion site infection [Unknown]
  - Infusion site erythema [Unknown]
  - Pyrexia [Unknown]
  - Erythema [Unknown]

NARRATIVE: CASE EVENT DATE: 201102
